FAERS Safety Report 4659534-7 (Version None)
Quarter: 2005Q2

REPORT INFORMATION
  Report Type: 
  Country: None (occurrence: None)
  Receive Date: 20050510
  Receipt Date: 20050428
  Transmission Date: 20051028
  Serious: Yes (Hospitalization)
  Sender: FDA-Public Use
  Company Number: RENA-11340

PATIENT
  Age: 65 Year
  Sex: Male

DRUGS (16)
  1. PHOSBLOCK [Suspect]
     Indication: HYPERPHOSPHATAEMIA
     Dosage: 0.5 G BID PO
     Route: 048
     Dates: start: 20041119
  2. PHOSBLOCK [Suspect]
     Indication: HYPERPHOSPHATAEMIA
     Dosage: 0.5 G TID PO
     Route: 048
     Dates: start: 20040225, end: 20041118
  3. FUROSEMIDE [Concomitant]
  4. TEPRENONE [Concomitant]
  5. ATORVASTATIN CALCIUM [Concomitant]
  6. CARVEDILOL [Concomitant]
  7. NIFEDIPINE [Concomitant]
  8. DOXAZOSIN MESYLATE [Concomitant]
  9. FAMOTIDINE [Concomitant]
  10. D-SOLBITOL [Concomitant]
  11. EPOETIN BETA [Concomitant]
  12. VERAPAMIL HYDROCHLORIDE [Concomitant]
  13. SENNOSIDE [Concomitant]
  14. DEXTROMETHORPHAN HYDROBROMIDE [Concomitant]
  15. CIDEFERRON [Concomitant]
  16. GLUCOSE [Concomitant]

REACTIONS (8)
  - ATRIAL FIBRILLATION [None]
  - BLOOD PRESSURE SYSTOLIC DECREASED [None]
  - DEPRESSED LEVEL OF CONSCIOUSNESS [None]
  - DIZZINESS [None]
  - HYPERKALAEMIA [None]
  - MALAISE [None]
  - SINUS BRADYCARDIA [None]
  - VENTRICULAR TACHYCARDIA [None]
